FAERS Safety Report 7548612-0 (Version None)
Quarter: 2011Q2

REPORT INFORMATION
  Report Type: 
  Country: None (occurrence: None)
  Receive Date: 20110615
  Receipt Date: 20110608
  Transmission Date: 20111010
  Serious: Yes (Hospitalization, Other)
  Sender: FDA-Public Use
  Company Number: US-SANOFI-AVENTIS-2011SA025028

PATIENT
  Age: 75 Year
  Sex: Male
  Weight: 91.17 kg

DRUGS (21)
  1. JEVTANA KIT [Suspect]
     Indication: PROSTATE CANCER METASTATIC
     Route: 041
     Dates: start: 20110106, end: 20110106
  2. JEVTANA KIT [Suspect]
     Route: 041
     Dates: start: 20110106, end: 20110106
  3. JEVTANA KIT [Suspect]
     Route: 041
     Dates: start: 20110519, end: 20110519
  4. FLAXSEED OIL [Concomitant]
     Route: 048
  5. MULTI-VITAMINS [Concomitant]
     Dosage: 1 TABLET DAILY
     Route: 048
  6. TENORMIN [Concomitant]
     Route: 048
  7. CHONDROITIN SULFATE/GLUCOSAMINE HYDROCHLORIDE [Concomitant]
     Route: 048
  8. KEFLEX [Concomitant]
     Route: 048
     Dates: start: 20110101, end: 20110101
  9. JEVTANA KIT [Suspect]
     Route: 041
     Dates: start: 20110101, end: 20110101
  10. PLAVIX [Suspect]
     Route: 048
     Dates: end: 20110102
  11. ASPIRIN [Suspect]
     Dosage: CHEW 1 TABLET DAILY
     Route: 048
     Dates: end: 20110101
  12. ZOCOR [Concomitant]
     Dosage: 20 MG TABLETS - 40 MG AT BEDTIME
     Route: 048
  13. ZOMETA [Concomitant]
     Route: 042
  14. JEVTANA KIT [Suspect]
     Route: 041
     Dates: start: 20110101, end: 20110101
  15. IBUROFEN [Suspect]
     Indication: OSTEOARTHRITIS
     Route: 048
     Dates: end: 20110101
  16. JEVTANA KIT [Suspect]
     Route: 041
     Dates: start: 20110310, end: 20110310
  17. JEVTANA KIT [Suspect]
     Route: 041
     Dates: start: 20110310, end: 20110310
  18. JEVTANA KIT [Suspect]
     Route: 041
     Dates: start: 20110519, end: 20110519
  19. LUPRON [Concomitant]
     Dosage: EVERY 3 MONTHS
     Route: 030
     Dates: start: 20101216, end: 20101216
  20. PREDNISONE [Concomitant]
     Route: 048
  21. FISH OIL [Concomitant]
     Route: 048

REACTIONS (14)
  - ATRIAL FIBRILLATION [None]
  - MELAENA [None]
  - FATIGUE [None]
  - AGEUSIA [None]
  - OEDEMA PERIPHERAL [None]
  - ASTHENIA [None]
  - DIARRHOEA [None]
  - ABDOMINAL PAIN [None]
  - WEIGHT DECREASED [None]
  - CORONARY ARTERY OCCLUSION [None]
  - CHEST PAIN [None]
  - ARRHYTHMIA [None]
  - DIZZINESS [None]
  - GASTROINTESTINAL HAEMORRHAGE [None]
